FAERS Safety Report 7931464-4 (Version None)
Quarter: 2011Q4

REPORT INFORMATION
  Report Type: 
  Country: None (occurrence: None)
  Receive Date: 20111121
  Receipt Date: 20111115
  Transmission Date: 20120403
  Serious: Yes (Hospitalization)
  Sender: FDA-Public Use
  Company Number: TW-ABBOTT-11P-153-0874727-00

PATIENT
  Age: 15 Year
  Sex: Male

DRUGS (5)
  1. PROCHLORPERAZINE [Concomitant]
     Indication: GASTROENTERITIS
     Route: 030
  2. BIPERIDEN HYDROCHLORIDE TAB [Suspect]
     Route: 048
  3. BIPERIDEN HYDROCHLORIDE TAB [Suspect]
     Indication: DYSTONIA
     Route: 030
  4. PROCHLORPERAZINE [Concomitant]
  5. PINAVERIUM BROMIDE [Concomitant]
     Indication: GASTROENTERITIS

REACTIONS (1)
  - DELIRIUM [None]
